FAERS Safety Report 4751128-8 (Version None)
Quarter: 2005Q3

REPORT INFORMATION
  Report Type: 
  Country: None (occurrence: None)
  Receive Date: 20050822
  Receipt Date: 20050811
  Transmission Date: 20060218
  Serious: Yes (Hospitalization)
  Sender: FDA-Public Use
  Company Number: 200510000BFR

PATIENT
  Age: 49 Year
  Sex: Female

DRUGS (6)
  1. ACARBOSE [Suspect]
     Indication: DIABETES MELLITUS NON-INSULIN-DEPENDENT
     Dosage: TID, ORAL
     Route: 048
     Dates: start: 20020101, end: 20041108
  2. KLIPAL [Suspect]
     Indication: ARTHRALGIA
     Dosage: TID, ORAL
     Route: 048
     Dates: start: 20041104, end: 20041105
  3. GLUCOPHAGE [Suspect]
     Indication: DIABETES MELLITUS NON-INSULIN-DEPENDENT
     Dosage: TID, ORAL
     Route: 049
     Dates: start: 20020101, end: 20041108
  4. DOLIPRANE [Concomitant]
  5. HEMEOPATIC TREATMENT [Concomitant]
  6. FRAXIPARINE [Concomitant]

REACTIONS (3)
  - CYTOLYTIC HEPATITIS [None]
  - PULMONARY EMBOLISM [None]
  - SYNCOPE [None]
